FAERS Safety Report 25272660 (Version 1)
Quarter: 2025Q2

REPORT INFORMATION
  Report Type: Spontaneous
  Country: CN (occurrence: CN)
  Receive Date: 20250506
  Receipt Date: 20250506
  Transmission Date: 20250717
  Serious: Yes (Hospitalization)
  Sender: MYLAN
  Company Number: CN-MYLANLABS-2025M1037706

PATIENT
  Age: 67 Year
  Sex: Female
  Weight: 50 kg

DRUGS (8)
  1. LIPITOR [Suspect]
     Active Substance: ATORVASTATIN CALCIUM
     Indication: Hyperlipidaemia
     Dosage: 1 DOSAGE FORM, QD
     Dates: start: 20250419, end: 20250421
  2. LIPITOR [Suspect]
     Active Substance: ATORVASTATIN CALCIUM
     Dosage: 1 DOSAGE FORM, QD
     Route: 048
     Dates: start: 20250419, end: 20250421
  3. LIPITOR [Suspect]
     Active Substance: ATORVASTATIN CALCIUM
     Dosage: 1 DOSAGE FORM, QD
     Route: 048
     Dates: start: 20250419, end: 20250421
  4. LIPITOR [Suspect]
     Active Substance: ATORVASTATIN CALCIUM
     Dosage: 1 DOSAGE FORM, QD
     Dates: start: 20250419, end: 20250421
  5. BEZAFIBRATE [Suspect]
     Active Substance: BEZAFIBRATE
     Indication: Hyperlipidaemia
     Dosage: 1 DOSAGE FORM, QD
     Dates: start: 20250419, end: 20250421
  6. BEZAFIBRATE [Suspect]
     Active Substance: BEZAFIBRATE
     Dosage: 1 DOSAGE FORM, QD
     Route: 048
     Dates: start: 20250419, end: 20250421
  7. BEZAFIBRATE [Suspect]
     Active Substance: BEZAFIBRATE
     Dosage: 1 DOSAGE FORM, QD
     Route: 048
     Dates: start: 20250419, end: 20250421
  8. BEZAFIBRATE [Suspect]
     Active Substance: BEZAFIBRATE
     Dosage: 1 DOSAGE FORM, QD
     Dates: start: 20250419, end: 20250421

REACTIONS (4)
  - Asthenia [Recovering/Resolving]
  - Myalgia [Recovering/Resolving]
  - Blood creatine phosphokinase increased [Recovering/Resolving]
  - Rhabdomyolysis [Recovering/Resolving]

NARRATIVE: CASE EVENT DATE: 20250420
